FAERS Safety Report 8493683-0 (Version None)
Quarter: 2012Q3

REPORT INFORMATION
  Report Type: 
  Country: None (occurrence: None)
  Receive Date: 20120706
  Receipt Date: 20111028
  Transmission Date: 20120928
  Serious: Yes (Death)
  Sender: FDA-Public Use
  Company Number: PHHY2011DE55008

PATIENT
  Sex: Female

DRUGS (2)
  1. SANDOSTATIN LAR [Suspect]
     Dosage: 30 MG
     Route: 030
     Dates: start: 20110603
  2. SANDOSTATIN LAR [Suspect]
     Indication: NEUROENDOCRINE CARCINOMA METASTATIC
     Dosage: 30 MG
     Route: 030
     Dates: start: 20110211

REACTIONS (1)
  - NEOPLASM MALIGNANT [None]
